FAERS Safety Report 10261696 (Version 1)
Quarter: 2014Q2

REPORT INFORMATION
  Report Type: Spontaneous
  Country: US (occurrence: US)
  Receive Date: 20140626
  Receipt Date: 20140626
  Transmission Date: 20141212
  Serious: No
  Sender: FDA-Public Use
  Company Number: US-PFIZER INC-2014174929

PATIENT
  Sex: Female

DRUGS (2)
  1. LIPITOR [Suspect]
     Dosage: UNK
  2. PREMARIN [Suspect]
     Dosage: 0.3 MG, UNK
     Route: 048

REACTIONS (3)
  - Pain [Unknown]
  - Nervousness [Unknown]
  - Feeling jittery [Unknown]
